FAERS Safety Report 14151705 (Version 1)
Quarter: 2017Q4

REPORT INFORMATION
  Report Type: Spontaneous
  Country: GB (occurrence: AU)
  Receive Date: 20171102
  Receipt Date: 20171102
  Transmission Date: 20180321
  Serious: Yes (Death, Life-Threatening, Hospitalization)
  Sender: FDA-Public Use
  Company Number: GB-CONCORDIA PHARMACEUTICALS INC.-GSH201510-015280

PATIENT
  Age: 86 Year
  Sex: Male
  Weight: 57 kg

DRUGS (5)
  1. PANADEINE [Suspect]
     Active Substance: ACETAMINOPHEN\CODEINE PHOSPHATE
     Indication: PAIN
     Route: 065
     Dates: start: 19901014, end: 19901029
  2. VOLTAREN [Suspect]
     Active Substance: DICLOFENAC SODIUM
     Indication: PAIN
     Route: 065
     Dates: start: 19901023, end: 19901029
  3. DIGOXIN. [Suspect]
     Active Substance: DIGOXIN
     Indication: ARRHYTHMIA
     Route: 065
     Dates: start: 19901014, end: 19901028
  4. FUROSEMIDE. [Suspect]
     Active Substance: FUROSEMIDE
     Indication: CARDIAC FAILURE CONGESTIVE
     Route: 065
     Dates: start: 19901014, end: 19901029
  5. CLONAZEPAM. [Suspect]
     Active Substance: CLONAZEPAM
     Indication: PAIN
     Dosage: 1 MG (DAILY DOSE), , UNKNOWN
     Route: 065
     Dates: start: 19901027, end: 19901028

REACTIONS (6)
  - Confusional state [Unknown]
  - Cardiac arrest [Fatal]
  - Urinary incontinence [Unknown]
  - Encephalopathy [Fatal]
  - Acute kidney injury [Fatal]
  - Cyanosis [Unknown]

NARRATIVE: CASE EVENT DATE: 19911028
